FAERS Safety Report 7512856-4 (Version None)
Quarter: 2011Q2

REPORT INFORMATION
  Report Type: 
  Country: None (occurrence: None)
  Receive Date: 20110531
  Receipt Date: 20110520
  Transmission Date: 20111010
  Serious: Yes (Hospitalization, Other)
  Sender: FDA-Public Use
  Company Number: US-ASTRAZENECA-2011SE24703

PATIENT
  Age: 20062 Day
  Sex: Male
  Weight: 81.2 kg

DRUGS (11)
  1. CLONAZEPAM [Concomitant]
     Dosage: 1 MG
  2. LOVENOX [Concomitant]
  3. DILANTIN [Concomitant]
  4. PAROXETINE HCL [Concomitant]
     Dosage: 20 MG
  5. DULCOLAX [Concomitant]
     Dosage: PER DAY
  6. ALPRAZOLAM [Concomitant]
     Dosage: 0.5 MG
  7. PLAVIX [Concomitant]
  8. COLACE [Concomitant]
  9. SEROQUEL [Suspect]
     Dosage: 500 MG AM AND 100 MG PM
     Route: 048
  10. DILANTIN [Concomitant]
     Dosage: 125 MG
  11. MIRALAX [Concomitant]

REACTIONS (8)
  - AMPUTATION [None]
  - ARTERECTOMY [None]
  - DIABETES MELLITUS [None]
  - THROMBECTOMY [None]
  - VASCULAR GRAFT [None]
  - BURNING SENSATION [None]
  - POOR PERIPHERAL CIRCULATION [None]
  - ISCHAEMIA [None]
